FAERS Safety Report 6802726-9 (Version None)
Quarter: 2010Q2

REPORT INFORMATION
  Report Type: 
  Country: None (occurrence: None)
  Receive Date: 20100628
  Receipt Date: 20100615
  Transmission Date: 20101027
  Serious: Yes (Hospitalization)
  Sender: FDA-Public Use
  Company Number: US-ELI_LILLY_AND_COMPANY-US201006004380

PATIENT
  Sex: Female

DRUGS (6)
  1. FORTEO [Suspect]
     Indication: OSTEOPOROSIS
     Dosage: 20 UG, DAILY (1/D)
     Dates: end: 20100602
  2. BENAZEPRIL HYDROCHLORIDE [Concomitant]
  3. METOPROLOL [Concomitant]
  4. SIMVASTATIN [Concomitant]
  5. CALCIUM CITRATE [Concomitant]
  6. VITAMIN D [Concomitant]

REACTIONS (4)
  - CONDITION AGGRAVATED [None]
  - FALL [None]
  - FEMUR FRACTURE [None]
  - HYPOACUSIS [None]
